FAERS Safety Report 5023883-3 (Version None)
Quarter: 2006Q2

REPORT INFORMATION
  Report Type: 
  Country: None (occurrence: None)
  Receive Date: 20060606
  Receipt Date: 20051110
  Transmission Date: 20061013
  Serious: Yes (Other)
  Sender: FDA-Public Use
  Company Number: CHPA2005US08843

PATIENT
  Age: 22 Year
  Sex: Female
  Weight: 54.4 kg

DRUGS (1)
  1. TRIAMINIC SRT [Suspect]
     Indication: HYPERSENSITIVITY
     Dosage: ORAL
     Route: 048
     Dates: start: 19880101, end: 20010101

REACTIONS (1)
  - CONVULSION [None]
